FAERS Safety Report 9032445 (Version 6)
Quarter: 2013Q3

REPORT INFORMATION
  Report Type: Spontaneous
  Country: US (occurrence: US)
  Receive Date: 20130125
  Receipt Date: 20130806
  Transmission Date: 20140515
  Serious: Yes (Hospitalization)
  Sender: FDA-Public Use
  Company Number: US-GLAXOSMITHKLINE-A1008731A

PATIENT
  Age: 73 Year
  Sex: Female
  Weight: 68.6 kg

DRUGS (25)
  1. FLOLAN [Suspect]
     Indication: PULMONARY ARTERIAL HYPERTENSION
     Dosage: 30NGKM CONTINUOUS
     Route: 042
     Dates: start: 20101026
  2. VELETRI [Suspect]
     Indication: PULMONARY HYPERTENSION
     Dosage: 30NGKM CONTINUOUS
     Route: 042
  3. ADCIRCA [Concomitant]
  4. TRACLEER [Concomitant]
  5. ARAVA [Concomitant]
  6. BUTALBITAL+ACETAMINOPHEN+CAFFEINE [Concomitant]
  7. DEXILANT [Concomitant]
  8. DIGOXIN [Concomitant]
  9. FLUTICASONE [Concomitant]
  10. HYDROCODONE + ACETAMINOPHEN [Concomitant]
  11. LACTOBACILLUS RHAMNOSUS [Concomitant]
  12. LASIX [Concomitant]
  13. LEVOTHROID [Concomitant]
  14. LOPERAMIDE [Concomitant]
  15. LORATADINE [Concomitant]
  16. METOLAZONE [Concomitant]
  17. METOPROLOL [Concomitant]
  18. POTASSIUM CHLORIDE [Concomitant]
  19. SPIRONOLACTONE [Concomitant]
  20. DULOXETINE [Concomitant]
  21. PREDNISONE [Concomitant]
  22. DOXYCYCLINE HYCLATE [Concomitant]
  23. ENOXAPARIN [Concomitant]
  24. WARFARIN [Concomitant]
  25. COUMADIN [Concomitant]

REACTIONS (9)
  - Renal failure [Unknown]
  - Pulmonary hypertension [Unknown]
  - Pneumonia [Unknown]
  - Medical device complication [Recovering/Resolving]
  - Catheter removal [Recovering/Resolving]
  - Central venous catheterisation [Recovering/Resolving]
  - Presyncope [Unknown]
  - Diarrhoea [Unknown]
  - Nausea [Unknown]
